FAERS Safety Report 18182653 (Version 1)
Quarter: 2020Q3

REPORT INFORMATION
  Report Type: Spontaneous
  Country: US (occurrence: US)
  Receive Date: 20200821
  Receipt Date: 20200821
  Transmission Date: 20201103
  Serious: Yes (Other)
  Sender: FDA-Public Use
  Company Number: US-PURDUE-USA-2020-0161966

PATIENT
  Age: 21 Year

DRUGS (1)
  1. OXYCONTIN [Suspect]
     Active Substance: OXYCODONE HYDROCHLORIDE
     Indication: SCOLIOSIS
     Dosage: UNK
     Route: 048
     Dates: start: 199901

REACTIONS (5)
  - Papilloma viral infection [Unknown]
  - Drug dependence [Unknown]
  - Ill-defined disorder [Unknown]
  - Hepatitis C [Unknown]
  - Drug abuse [Unknown]

NARRATIVE: CASE EVENT DATE: 199901
